FAERS Safety Report 12513117 (Version 1)
Quarter: 2016Q2

REPORT INFORMATION
  Report Type: Spontaneous
  Country: US (occurrence: None)
  Receive Date: 20160629
  Receipt Date: 20160629
  Transmission Date: 20160815
  Serious: Yes (Life-Threatening, Hospitalization, Disabling)
  Sender: FDA-Public Use
  Company Number: None

PATIENT
  Age: 59 Year
  Sex: Male

DRUGS (13)
  1. ZYLOPRIM [Suspect]
     Active Substance: ALLOPURINOL
     Indication: GOUT
     Route: 048
  2. UMECLIDINIUM [Concomitant]
     Active Substance: UMECLIDINIUM BROMIDE
  3. CARBOXYMETHYLCELLULOSE SODIUM. [Concomitant]
     Active Substance: CARBOXYMETHYLCELLULOSE SODIUM
  4. ASPIRIN. [Concomitant]
     Active Substance: ASPIRIN
  5. AMIODARONE [Concomitant]
     Active Substance: AMIODARONE
  6. PAROXETINE. [Concomitant]
     Active Substance: PAROXETINE
  7. ASCORBIC ACID. [Concomitant]
     Active Substance: ASCORBIC ACID
  8. ISOSORBIDE DINITRATE. [Concomitant]
     Active Substance: ISOSORBIDE DINITRATE
  9. WARFARIN [Concomitant]
     Active Substance: WARFARIN
  10. ARTIFICIAL TEAR [Concomitant]
     Active Substance: LANOLIN\MINERAL OIL\PETROLATUM
  11. HYDRALAZINE [Concomitant]
     Active Substance: HYDRALAZINE HYDROCHLORIDE
  12. VALSARTAN. [Concomitant]
     Active Substance: VALSARTAN
  13. METOPROLOL TARTRATE. [Concomitant]
     Active Substance: METOPROLOL TARTRATE

REACTIONS (3)
  - Malaise [None]
  - Toxic epidermal necrolysis [None]
  - Stevens-Johnson syndrome [None]

NARRATIVE: CASE EVENT DATE: 20160325
